FAERS Safety Report 5335033-4 (Version None)
Quarter: 2007Q2

REPORT INFORMATION
  Report Type: 
  Country: None (occurrence: None)
  Receive Date: 20070525
  Receipt Date: 20070516
  Transmission Date: 20071010
  Serious: Yes (Death, Other)
  Sender: FDA-Public Use
  Company Number: US-PURDUE-USA_2007_0026960

PATIENT
  Age: 17 Year
  Sex: Female
  Weight: 51 kg

DRUGS (6)
  1. OXYCONTIN [Suspect]
     Indication: DRUG ABUSER
     Dosage: UNK, UNK
  2. COCAINE [Suspect]
     Indication: DRUG ABUSER
  3. MUSCLE RELAXANTS [Suspect]
     Indication: DRUG ABUSER
     Dosage: UNK, UNK
  4. MARIJUANA [Suspect]
     Indication: DRUG ABUSER
     Dosage: UNK, UNK
  5. CARISOPRODOL [Suspect]
     Indication: DRUG ABUSER
  6. ETHYL ALCOHOL [Suspect]
     Indication: ALCOHOL USE

REACTIONS (6)
  - ANOXIC ENCEPHALOPATHY [None]
  - BRONCHOPNEUMONIA [None]
  - CARDIO-RESPIRATORY ARREST [None]
  - LOSS OF CONSCIOUSNESS [None]
  - MULTIPLE DRUG OVERDOSE ACCIDENTAL [None]
  - SUBSTANCE ABUSE [None]
